FAERS Safety Report 12074184 (Version 1)
Quarter: 2016Q1

REPORT INFORMATION
  Report Type: Spontaneous
  Country: US (occurrence: US)
  Receive Date: 20160212
  Receipt Date: 20160212
  Transmission Date: 20160526
  Serious: Yes (Hospitalization)
  Sender: FDA-Public Use
  Company Number: US-BAYER-2016-020291

PATIENT
  Sex: Female

DRUGS (1)
  1. ALKA-SELTZER PLUS SEVERE COLD AND FLU FORMULA [Suspect]
     Active Substance: ACETAMINOPHEN\CHLORPHENIRAMINE MALEATE\DEXTROMETHORPHAN HYDROBROMIDE\PHENYLEPHRINE HYDROCHLORIDE
     Indication: ABDOMINAL DISCOMFORT
     Dosage: 2 DF, ONCE
     Route: 048
     Dates: start: 20160129, end: 20160129

REACTIONS (3)
  - Somnolence [None]
  - Hypersomnia [None]
  - Product use issue [None]

NARRATIVE: CASE EVENT DATE: 201601
